FAERS Safety Report 9519587 (Version 1)
Quarter: 2013Q1

REPORT INFORMATION
  Report Type: Spontaneous
  Country: US (occurrence: None)
  Receive Date: 20130305
  Receipt Date: 20130305
  Transmission Date: 20140127
  Serious: Yes (Hospitalization, Other)
  Sender: FDA-Public Use
  Company Number: 163-21880-12010723

PATIENT
  Age: 79 Year
  Sex: Male
  Weight: 112 kg

DRUGS (9)
  1. REVLIMID [Suspect]
     Indication: PLASMA CELL MYELOMA
     Dosage: 25 MG, DAILY X 21D, OFF 7D, PO
     Route: 048
     Dates: start: 20111104, end: 20120319
  2. DEXAMETHASONE (DEXAMETHASONE) (UNKNOWN) [Suspect]
     Indication: PRODUCT USED FOR UNKNOWN INDICATION
     Dosage: 40 MG, ONCE WEEKLY ON SUNDAY, UNK
  3. WARFARIN (WARFARIN) (TABLETS) [Concomitant]
  4. PACKED RED BLOOD CELLS (RED BLOOD CELLS) (UNKNOWN)? [Concomitant]
  5. CRESTOR (ROSUVASTATIN) (TABLETS) [Concomitant]
  6. DILTIAZEM (DILTIAZEM) (CAPSULES) [Concomitant]
  7. MULTIVITAMINS (MULTIVITIAMINS) (TABLETS) [Concomitant]
  8. NIZOLRAL (KETOCONAZOLE) (2 PERCENT, CREAM) [Concomitant]
  9. TYLENOL (PARACETAMOL) (UNKNOWN) [Concomitant]

REACTIONS (3)
  - Syncope [None]
  - Atrial fibrillation [None]
  - Asthenia [None]
